FAERS Safety Report 8926592 (Version 1)
Quarter: 2012Q4

REPORT INFORMATION
  Report Type: 
  Country: US (occurrence: US)
  Receive Date: 20121127
  Receipt Date: 20121127
  Transmission Date: 20130627
  Serious: Yes (Death)
  Sender: FDA-Public Use
  Company Number: PHHY2012US107942

PATIENT
  Age: 32 Year
  Sex: Female

DRUGS (4)
  1. METHADONE [Suspect]
  2. QUETIAPINE [Suspect]
  3. GABAPENTIN [Suspect]
  4. CITALOPRAM [Suspect]

REACTIONS (2)
  - Toxicity to various agents [Fatal]
  - Completed suicide [Fatal]
